FAERS Safety Report 19567316 (Version 2)
Quarter: 2021Q3

REPORT INFORMATION
  Report Type: Spontaneous
  Country: FR (occurrence: FR)
  Receive Date: 20210716
  Receipt Date: 20210722
  Transmission Date: 20211014
  Serious: Yes (Hospitalization)
  Sender: FDA-Public Use
  Company Number: FR-JNJFOC-20210714614

PATIENT
  Age: 62 Year
  Sex: Male
  Weight: 68 kg

DRUGS (21)
  1. ACIDE FOLIQUE [Concomitant]
     Active Substance: FOLIC ACID
  2. TREMFYA [Suspect]
     Active Substance: GUSELKUMAB
     Indication: PRODUCT USED FOR UNKNOWN INDICATION
     Route: 065
     Dates: start: 20190311, end: 20210317
  3. KYNTHEUM [Concomitant]
     Active Substance: BRODALUMAB
     Route: 058
     Dates: start: 20181105, end: 20190311
  4. STELARA [Concomitant]
     Active Substance: USTEKINUMAB
     Route: 058
     Dates: start: 20180220, end: 20180320
  5. CLOBEX [CLOXACILLIN SODIUM] [Concomitant]
  6. TEMERITDUO [Concomitant]
     Active Substance: HYDROCHLOROTHIAZIDE\NEBIVOLOL HYDROCHLORIDE
  7. TREMFYA [Suspect]
     Active Substance: GUSELKUMAB
  8. LERCAPRESS [ENALAPRIL MALEATE;LERCANIDIPINE HYDROCHLORIDE] [Concomitant]
     Active Substance: ENALAPRIL MALEATE\LERCANIDIPINE HYDROCHLORIDE
  9. TREMFYA [Suspect]
     Active Substance: GUSELKUMAB
  10. STELARA [Concomitant]
     Active Substance: USTEKINUMAB
     Route: 058
     Dates: start: 20180320, end: 20181105
  11. METHOTREXATE. [Concomitant]
     Active Substance: METHOTREXATE
     Route: 048
     Dates: start: 20190909, end: 20210317
  12. PRAVASTINE [Concomitant]
     Active Substance: PRAVASTATIN SODIUM
  13. EZETROL [Concomitant]
     Active Substance: EZETIMIBE
  14. OFLOCET [OFLOXACIN] [Concomitant]
     Active Substance: OFLOXACIN
  15. MECIR [Concomitant]
     Active Substance: TAMSULOSIN HYDROCHLORIDE
  16. VASELINE [PARAFFIN SOFT] [Concomitant]
  17. PROTOPIC [Concomitant]
     Active Substance: TACROLIMUS
  18. KARDEGIC [Concomitant]
     Active Substance: ASPIRIN DL-LYSINE
  19. NERISONE [Concomitant]
     Active Substance: DIFLUCORTOLONE VALERATE
  20. VESICARE [Concomitant]
     Active Substance: SOLIFENACIN SUCCINATE
  21. DIPROSONE [BETAMETHASONE DIPROPIONATE;BETAMETHASONE SODIUM PHOSPHATE] [Concomitant]

REACTIONS (1)
  - Thromboangiitis obliterans [Recovered/Resolved]

NARRATIVE: CASE EVENT DATE: 20201014
